FAERS Safety Report 9757402 (Version 1)
Quarter: 2013Q4

REPORT INFORMATION
  Report Type: Spontaneous
  Country: FR (occurrence: FR)
  Receive Date: 20131214
  Receipt Date: 20131214
  Transmission Date: 20140711
  Serious: Yes (Hospitalization)
  Sender: FDA-Public Use
  Company Number: FR-IPSEN BIOPHARMACEUTICALS, INC.-2013-5532

PATIENT
  Age: 91 Year
  Sex: Female

DRUGS (6)
  1. DYSPORT [Suspect]
     Indication: ESSENTIAL TREMOR
     Dosage: 200 UNITS
     Route: 030
     Dates: start: 20130318, end: 20130318
  2. DYSPORT [Suspect]
     Indication: OFF LABEL USE
  3. KARDEGIC (LYSINE ACETYLSALYCILATE) 75 MG [Concomitant]
     Indication: PRODUCT USED FOR UNKNOWN INDICATION
     Dosage: NOT REPORTED
     Route: 065
  4. TAHOR (ATORVASTATIN CALCIUM) [Concomitant]
     Indication: PRODUCT USED FOR UNKNOWN INDICATION
     Dosage: NOT REPORTED
     Route: 065
  5. LASILIX [Concomitant]
     Indication: PRODUCT USED FOR UNKNOWN INDICATION
     Dosage: NOT REPORTED
     Route: 065
  6. ANTIHYPERTENSIVE [Concomitant]
     Indication: PRODUCT USED FOR UNKNOWN INDICATION
     Dosage: NOT REPORTED
     Route: 065

REACTIONS (1)
  - Acute pulmonary oedema [Recovered/Resolved]
